FAERS Safety Report 24305535 (Version 3)
Quarter: 2025Q4

REPORT INFORMATION
  Report Type: Spontaneous
  Country: VE (occurrence: VE)
  Receive Date: 20240911
  Receipt Date: 20251003
  Transmission Date: 20260117
  Serious: Yes (Life-Threatening, Other)
  Sender: NOVARTIS
  Company Number: VE-002147023-NVSC2024VE181308

PATIENT
  Sex: Female

DRUGS (2)
  1. GLIVEC [Suspect]
     Active Substance: IMATINIB MESYLATE
     Indication: Chronic myeloid leukaemia
     Dosage: 400 MG (4X100MG)
     Route: 065
  2. HYDREA [Concomitant]
     Active Substance: HYDROXYUREA
     Indication: Product used for unknown indication
     Dosage: UNK
     Route: 065

REACTIONS (9)
  - White blood cell count increased [Unknown]
  - Hepatitis [Unknown]
  - Pancreatitis [Unknown]
  - Blast cell count increased [Unknown]
  - Vomiting [Unknown]
  - Splenomegaly [Unknown]
  - Illness [Unknown]
  - Abdominal pain lower [Unknown]
  - Discomfort [Unknown]
